FAERS Safety Report 19128915 (Version 2)
Quarter: 2021Q2

REPORT INFORMATION
  Report Type: Spontaneous
  Country: US (occurrence: US)
  Receive Date: 20210413
  Receipt Date: 20210518
  Transmission Date: 20210717
  Serious: Yes (Other)
  Sender: FDA-Public Use
  Company Number: US-PFIZER INC-2021360642

PATIENT
  Sex: Female

DRUGS (2)
  1. CORTISPORIN [Suspect]
     Active Substance: BACITRACIN ZINC\HYDROCORTISONE\NEOMYCIN SULFATE\POLYMYXIN B SULFATE
     Dosage: UNK
  2. TOZINAMERAN. [Suspect]
     Active Substance: TOZINAMERAN
     Indication: COVID-19 IMMUNISATION
     Dosage: UNKNOWN, SINGLE

REACTIONS (9)
  - Head discomfort [Unknown]
  - Speech disorder [Unknown]
  - Multiple sclerosis relapse [Unknown]
  - Optic neuritis [Unknown]
  - Headache [Unknown]
  - Dysphagia [Unknown]
  - Hypoaesthesia [Unknown]
  - Musculoskeletal discomfort [Unknown]
  - Muscle disorder [Unknown]
